FAERS Safety Report 9063447 (Version 2)
Quarter: 2013Q1

REPORT INFORMATION
  Report Type: Spontaneous
  Country: US (occurrence: US)
  Receive Date: 20130213
  Receipt Date: 20130312
  Transmission Date: 20140127
  Serious: Yes (Other)
  Sender: FDA-Public Use
  Company Number: PHEH2013US003054

PATIENT
  Sex: Female

DRUGS (11)
  1. CLOZARIL [Suspect]
     Dosage: 100 MG, FIVE PER DAY
     Route: 048
     Dates: start: 1992
  2. CLOZARIL [Suspect]
     Dosage: UNK
     Route: 048
  3. CLOZAPINE [Suspect]
  4. NAVANE [Suspect]
     Dosage: UNK
  5. PROLIXIN [Suspect]
     Dosage: UNK
  6. THORAZINE [Suspect]
     Dosage: UNK
  7. HALDOL [Suspect]
     Dosage: UNK
  8. PROPRANOLOL [Concomitant]
     Dosage: UNK
  9. PROZAC [Concomitant]
     Dosage: UNK
  10. RISPERIDONE [Concomitant]
     Dosage: UNK
  11. DEMEROL [Concomitant]
     Dosage: UNK

REACTIONS (6)
  - Mental disorder [Unknown]
  - Galactorrhoea [Unknown]
  - Paranoia [Unknown]
  - Bronchitis [Unknown]
  - Hallucination [Unknown]
  - Convulsion [Unknown]
